FAERS Safety Report 18564303 (Version 1)
Quarter: 2020Q4

REPORT INFORMATION
  Report Type: Spontaneous
  Country: US (occurrence: US)
  Receive Date: 20201130
  Receipt Date: 20201130
  Transmission Date: 20210114
  Serious: Yes (Hospitalization)
  Sender: FDA-Public Use
  Company Number: None

PATIENT
  Age: 65 Year
  Sex: Male

DRUGS (15)
  1. PROAIR HFA [Concomitant]
     Active Substance: ALBUTEROL SULFATE
  2. TESTOSTERONE. [Concomitant]
     Active Substance: TESTOSTERONE
  3. BUMETANIDE. [Concomitant]
     Active Substance: BUMETANIDE
  4. ATORVASTATIN [Concomitant]
     Active Substance: ATORVASTATIN
  5. ISOSORBIDE. [Concomitant]
     Active Substance: ISOSORBIDE
  6. ABUTEROL [Concomitant]
  7. CLOPIDOGREL [Concomitant]
     Active Substance: CLOPIDOGREL BISULFATE
  8. DOXAZOSIN [Concomitant]
     Active Substance: DOXAZOSIN MESYLATE
  9. DRONABINOL. [Concomitant]
     Active Substance: DRONABINOL
  10. FAMOTIDINE. [Concomitant]
     Active Substance: FAMOTIDINE
  11. JULUCA [Suspect]
     Active Substance: DOLUTEGRAVIR SODIUM\RILPIVIRINE HYDROCHLORIDE
     Indication: HIV INFECTION
     Route: 048
  12. ASPIRIN. [Concomitant]
     Active Substance: ASPIRIN
  13. VENLAFAXINE [Concomitant]
     Active Substance: VENLAFAXINE HYDROCHLORIDE
  14. EFFER-K 20 [Concomitant]
  15. CARVEDILOL. [Concomitant]
     Active Substance: CARVEDILOL

REACTIONS (6)
  - Therapy interrupted [None]
  - Pneumonia [None]
  - Decubitus ulcer [None]
  - T-lymphocyte count decreased [None]
  - Malnutrition [None]
  - Night sweats [None]
